FAERS Safety Report 6906695-2 (Version None)
Quarter: 2010Q3

REPORT INFORMATION
  Report Type: 
  Country: None (occurrence: None)
  Receive Date: 20100708
  Receipt Date: 20090409
  Transmission Date: 20110219
  Serious: Yes (Other)
  Sender: FDA-Public Use
  Company Number: 2008092623

PATIENT
  Age: 35 Year
  Sex: Male
  Weight: 81.8 kg

DRUGS (2)
  1. CHANTIX [Suspect]
     Indication: SMOKING CESSATION THERAPY
     Dates: start: 20071001
  2. LEXAPRO [Concomitant]

REACTIONS (5)
  - DEPRESSION [None]
  - PERSONALITY CHANGE [None]
  - SOMNOLENCE [None]
  - SUICIDAL IDEATION [None]
  - WEIGHT DECREASED [None]
